FAERS Safety Report 11699654 (Version 1)
Quarter: 2015Q4

REPORT INFORMATION
  Report Type: Spontaneous
  Country: NL (occurrence: NL)
  Receive Date: 20151105
  Receipt Date: 20151105
  Transmission Date: 20160304
  Serious: Yes (Death, Hospitalization)
  Sender: FDA-Public Use
  Company Number: NL-PFIZER INC-2015366390

PATIENT
  Age: 70 Year
  Sex: Female

DRUGS (1)
  1. AMIODARONE HCL [Suspect]
     Active Substance: AMIODARONE HYDROCHLORIDE
     Indication: ATRIAL FIBRILLATION
     Dosage: 3 DF, DAILY
     Route: 048
     Dates: start: 2010, end: 201508

REACTIONS (5)
  - Hypothyroidism [Unknown]
  - Interstitial lung disease [Fatal]
  - Pneumocystis jirovecii pneumonia [Fatal]
  - Pulmonary haemorrhage [Fatal]
  - Sepsis [Fatal]

NARRATIVE: CASE EVENT DATE: 20150912
